FAERS Safety Report 5664422-3 (Version None)
Quarter: 2008Q1

REPORT INFORMATION
  Report Type: 
  Country: None (occurrence: None)
  Receive Date: 20080314
  Receipt Date: 20080229
  Transmission Date: 20080703
  Serious: Yes (Hospitalization)
  Sender: FDA-Public Use
  Company Number: US-AMGEN-KDL252173

PATIENT
  Sex: Female
  Weight: 83.5 kg

DRUGS (15)
  1. ENBREL [Suspect]
     Indication: RHEUMATOID ARTHRITIS
     Route: 058
     Dates: start: 20040801
  2. METHOTREXATE [Concomitant]
     Route: 065
     Dates: end: 20040101
  3. PLAQUENIL [Concomitant]
     Route: 065
     Dates: start: 20071001, end: 20071001
  4. HUMIRA [Concomitant]
     Route: 065
     Dates: start: 20050801, end: 20050901
  5. FLONASE [Concomitant]
     Route: 065
  6. CLARITIN [Concomitant]
     Route: 048
  7. PEPCID [Concomitant]
     Route: 048
  8. ADVAIR DISKUS 100/50 [Concomitant]
     Route: 065
  9. FOLIC ACID [Concomitant]
     Route: 048
  10. VITAMIN TAB [Concomitant]
     Route: 065
  11. LOVENOX [Concomitant]
     Route: 058
     Dates: start: 20080104
  12. THYROID TAB [Concomitant]
     Route: 048
  13. FISH OIL [Concomitant]
     Route: 048
  14. CALCIUM [Concomitant]
     Route: 048
  15. ASCORBIC ACID [Concomitant]
     Route: 048

REACTIONS (6)
  - ECLAMPSIA [None]
  - LYMPHOCYTE COUNT INCREASED [None]
  - NASOPHARYNGITIS [None]
  - PREMATURE LABOUR [None]
  - RHEUMATOID ARTHRITIS [None]
  - VOMITING IN PREGNANCY [None]
